FAERS Safety Report 8284678 (Version 2)
Quarter: 2018Q4

REPORT INFORMATION
  Report Type: Report from Study
  Country: DE (occurrence: DE)
  Receive Date: 20111212
  Receipt Date: 20181214
  Transmission Date: 20190205
  Serious: Yes (Life-Threatening, Hospitalization, Other)
  Sender: FDA-Public Use
  Company Number: DE-ELI_LILLY_AND_COMPANY-DE201111008377

PATIENT
  Age: 48 Year
  Sex: Male

DRUGS (8)
  1. MIRTAZAPINE. [Concomitant]
     Active Substance: MIRTAZAPINE
  2. FLUOXETINE [Suspect]
     Active Substance: FLUOXETINE HYDROCHLORIDE
     Indication: PRODUCT USED FOR UNKNOWN INDICATION
     Dosage: 10 MG, QD
     Route: 048
     Dates: start: 20110517, end: 20110521
  3. AMITRIPTYLINE [Concomitant]
     Active Substance: AMITRIPTYLINE
  4. MAPROTILINE [Concomitant]
     Active Substance: MAPROTILINE
  5. FLUOXETINE [Suspect]
     Active Substance: FLUOXETINE HYDROCHLORIDE
     Dosage: 20 MG, QD
     Route: 048
     Dates: start: 20110522, end: 20110606
  6. LITHIUM-DURILES [Concomitant]
     Active Substance: LITHIUM SULFATE
     Dosage: 900 MG, UNK
     Route: 048
     Dates: start: 20110603, end: 20110606
  7. LORAZEPAM. [Concomitant]
     Active Substance: LORAZEPAM
  8. SERTRALINE [Concomitant]
     Active Substance: SERTRALINE HYDROCHLORIDE

REACTIONS (16)
  - Impulsive behaviour [Unknown]
  - Antisocial behaviour [Unknown]
  - Stress [Unknown]
  - Hypotonia [Unknown]
  - Somnolence [Unknown]
  - Negative thoughts [Unknown]
  - Unresponsive to stimuli [Unknown]
  - Suicidal ideation [Unknown]
  - Poor quality sleep [Unknown]
  - Agitation [Unknown]
  - Pallor [Unknown]
  - Suicide attempt [Recovered/Resolved]
  - Blood pressure increased [Unknown]
  - Fatigue [Unknown]
  - Endotracheal intubation [Unknown]
  - Cardiovascular disorder [Unknown]

NARRATIVE: CASE EVENT DATE: 20110604
